FAERS Safety Report 9171316 (Version 2)
Quarter: 2013Q4

REPORT INFORMATION
  Report Type: Spontaneous
  Country: US (occurrence: US)
  Receive Date: 20130319
  Receipt Date: 20131024
  Transmission Date: 20140711
  Serious: Yes (Other)
  Sender: FDA-Public Use
  Company Number: US-BAYER-2013-031183

PATIENT
  Age: 28 Year
  Sex: Female
  Weight: 81.18 kg

DRUGS (3)
  1. MIRENA [Suspect]
     Indication: CONTRACEPTION
     Dosage: 20 MCG/24HR, CONT
     Route: 015
     Dates: start: 20100426, end: 20110204
  2. PODOFILOX [Concomitant]
     Indication: ANOGENITAL WARTS
  3. FERROUS SULFATE [Concomitant]

REACTIONS (16)
  - Uterine perforation [None]
  - Device dislocation [None]
  - Dyspareunia [None]
  - Sexual dysfunction [None]
  - Alopecia [Recovered/Resolved]
  - Sleep disorder [None]
  - Menstruation irregular [None]
  - Abdominal pain [None]
  - Injury [None]
  - Pain [None]
  - Emotional distress [None]
  - Depression [None]
  - General physical health deterioration [None]
  - Mental disorder [None]
  - Anxiety [None]
  - Stress [None]
